FAERS Safety Report 13601016 (Version 1)
Quarter: 2017Q2

REPORT INFORMATION
  Report Type: Spontaneous
  Country: US (occurrence: US)
  Receive Date: 20170601
  Receipt Date: 20170601
  Transmission Date: 20170830
  Serious: Yes (Hospitalization, Disabling)
  Sender: FDA-Public Use
  Company Number: None

PATIENT
  Age: 21 Year
  Sex: Female
  Weight: 65.25 kg

DRUGS (1)
  1. LEVOFLOXACIN. [Suspect]
     Active Substance: LEVOFLOXACIN
     Indication: KIDNEY INFECTION
     Dosage: ?          QUANTITY:1 CAPSULE(S);?
     Route: 048
     Dates: start: 20170224, end: 20170310

REACTIONS (13)
  - Seizure [None]
  - Feeling abnormal [None]
  - Impaired driving ability [None]
  - Quality of life decreased [None]
  - Tremor [None]
  - Vertigo [None]
  - Impaired work ability [None]
  - Neuropathy peripheral [None]
  - Abasia [None]
  - Loss of personal independence in daily activities [None]
  - Back pain [None]
  - Educational problem [None]
  - Dizziness [None]

NARRATIVE: CASE EVENT DATE: 20170224
